FAERS Safety Report 7903100-4 (Version None)
Quarter: 2011Q4

REPORT INFORMATION
  Report Type: 
  Country: None (occurrence: None)
  Receive Date: 20111104
  Receipt Date: 20111101
  Transmission Date: 20120403
  Serious: Yes (Death)
  Sender: FDA-Public Use
  Company Number: DSA_47905_2011

PATIENT
  Sex: Female

DRUGS (3)
  1. XANAX [Concomitant]
  2. XENAZINE [Suspect]
     Indication: PRODUCT USED FOR UNKNOWN INDICATION
     Dosage: 62.5 MG, 2 1/2 TABLETS DAILY ORAL
     Route: 048
  3. LEXAPRO [Concomitant]

REACTIONS (2)
  - FALL [None]
  - REFUSAL OF TREATMENT BY PATIENT [None]
